FAERS Safety Report 6600615-6 (Version None)
Quarter: 2010Q1

REPORT INFORMATION
  Report Type: 
  Country: None (occurrence: None)
  Receive Date: 20100224
  Receipt Date: 20100216
  Transmission Date: 20100710
  Serious: Yes (Hospitalization)
  Sender: FDA-Public Use
  Company Number: US-AMGEN-QUU386606

PATIENT
  Sex: Male
  Weight: 77.2 kg

DRUGS (22)
  1. NPLATE [Suspect]
     Indication: IDIOPATHIC THROMBOCYTOPENIC PURPURA
     Route: 058
     Dates: start: 20090304
  2. ACETAMINOPHEN [Concomitant]
     Route: 048
  3. MOMETASONE FUROATE [Concomitant]
     Route: 055
  4. BISACODYL [Concomitant]
     Route: 054
  5. FLEXERIL [Concomitant]
     Route: 048
  6. FORMOTEROL FUMARATE [Concomitant]
     Route: 055
  7. GUAIFENESIN W/DEXTROMETHORPHAN [Concomitant]
     Route: 048
  8. LORAZEPAM [Concomitant]
  9. MILK OF MAGNESIA TAB [Concomitant]
     Route: 048
  10. MUCINEX [Concomitant]
     Route: 048
  11. MULTI-VITAMINS [Concomitant]
     Route: 048
  12. MYLANTA [Concomitant]
     Route: 048
  13. NYSTATIN [Concomitant]
     Route: 048
  14. POTASSIUM CHLORIDE [Concomitant]
     Route: 048
  15. PREDNISONE TAB [Concomitant]
     Route: 048
  16. PRO-AIR (PARKE DAVIS) [Concomitant]
     Route: 055
  17. PROTONIX [Concomitant]
     Route: 048
  18. SINGULAIR [Concomitant]
     Route: 048
  19. IPRATROPIUM BROMIDE AND ALBUTEROL SULFATE [Concomitant]
  20. COMBIVENT [Concomitant]
  21. FUROSEMIDE [Concomitant]
     Route: 048
  22. OXYGEN [Concomitant]

REACTIONS (5)
  - DEEP VEIN THROMBOSIS [None]
  - DIARRHOEA [None]
  - NAUSEA [None]
  - PNEUMONIA [None]
  - WEIGHT DECREASED [None]
